FAERS Safety Report 15798883 (Version 1)
Quarter: 2019Q1

REPORT INFORMATION
  Report Type: Spontaneous
  Country: US (occurrence: US)
  Receive Date: 20190108
  Receipt Date: 20190108
  Transmission Date: 20190417
  Serious: Yes (Other)
  Sender: FDA-Public Use
  Company Number: US-INDIVIOR LIMITED-INDV-116713-2018

PATIENT
  Age: 36 Year
  Sex: Male

DRUGS (4)
  1. SUBOXONE [Suspect]
     Active Substance: BUPRENORPHINE HYDROCHLORIDE\NALOXONE HYDROCHLORIDE
     Indication: DRUG USE DISORDER
     Dosage: 24 MG DAILY (PRESCRIBED)
     Route: 065
     Dates: start: 2009, end: 201801
  2. SUBOXONE [Suspect]
     Active Substance: BUPRENORPHINE HYDROCHLORIDE\NALOXONE HYDROCHLORIDE
     Dosage: UNK (ALONG WITH 24 MG GENERIC BUP/NAL TABLET)
     Route: 065
     Dates: start: 2018
  3. BUPRENORPHINE/NALOXONE TABLET GENERIC [Suspect]
     Active Substance: BUPRENORPHINE\NALOXONE
     Indication: DRUG USE DISORDER
     Dosage: 24 MG DAILY
     Route: 065
     Dates: start: 201801
  4. METHAMPHETAMINE                    /00069101/ [Suspect]
     Active Substance: METHAMPHETAMINE
     Indication: PRODUCT USED FOR UNKNOWN INDICATION
     Dosage: 60 DOLLARS BALL
     Route: 048
     Dates: start: 20181229

REACTIONS (12)
  - Substance abuse [Unknown]
  - Agitation [Unknown]
  - Heart rate increased [Unknown]
  - Depression [Unknown]
  - Hallucination [Unknown]
  - Blood pressure increased [Unknown]
  - Paranoia [Unknown]
  - Disorientation [Unknown]
  - Dependence [Not Recovered/Not Resolved]
  - Intentional product misuse [Unknown]
  - Euphoric mood [Unknown]
  - Anxiety [Unknown]

NARRATIVE: CASE EVENT DATE: 2018
